FAERS Safety Report 5584684-0 (Version None)
Quarter: 2008Q1

REPORT INFORMATION
  Report Type: 
  Country: None (occurrence: None)
  Receive Date: 20080108
  Receipt Date: 20071217
  Transmission Date: 20080703
  Serious: Yes (Other)
  Sender: FDA-Public Use
  Company Number: US-PFIZER INC-2007083424

PATIENT
  Sex: Female
  Weight: 94.3 kg

DRUGS (3)
  1. XALATAN [Suspect]
     Indication: INTRAOCULAR PRESSURE TEST ABNORMAL
  2. XAL-EASE [Suspect]
  3. LOTREL [Concomitant]
     Indication: HYPERTENSION
     Route: 048

REACTIONS (9)
  - CONJUNCTIVAL DISCOLOURATION [None]
  - EYELASH THICKENING [None]
  - FEELING ABNORMAL [None]
  - GROWTH OF EYELASHES [None]
  - INCORRECT DOSE ADMINISTERED [None]
  - KNEE ARTHROPLASTY [None]
  - MUSCLE STRAIN [None]
  - MYDRIASIS [None]
  - SKIN DISCOLOURATION [None]
